FAERS Safety Report 17187807 (Version 1)
Quarter: 2019Q4

REPORT INFORMATION
  Report Type: Spontaneous
  Country: KR (occurrence: KR)
  Receive Date: 20191221
  Receipt Date: 20191221
  Transmission Date: 20200122
  Serious: Yes (Death, Hospitalization, Other)
  Sender: FDA-Public Use
  Company Number: KR-MICRO LABS LIMITED-ML2019-03684

PATIENT
  Age: 53 Year
  Sex: Male

DRUGS (1)
  1. METHAZOLAMIDE. [Suspect]
     Active Substance: METHAZOLAMIDE

REACTIONS (1)
  - Toxic epidermal necrolysis [Fatal]
